FAERS Safety Report 24713284 (Version 1)
Quarter: 2024Q4

REPORT INFORMATION
  Report Type: Spontaneous
  Country: US (occurrence: US)
  Receive Date: 20241209
  Receipt Date: 20241209
  Transmission Date: 20250115
  Serious: Yes (Other)
  Sender: MYLAN
  Company Number: US-MYLANLABS-2024M1108148

PATIENT
  Age: 7 Decade
  Sex: Female

DRUGS (1)
  1. METHOTREXATE [Suspect]
     Active Substance: METHOTREXATE
     Indication: Polymyositis
     Dosage: UNK
     Route: 058

REACTIONS (4)
  - Toxicity to various agents [Recovered/Resolved]
  - Mucocutaneous toxicity [Recovered/Resolved]
  - Pancytopenia [Unknown]
  - Off label use [Unknown]
